FAERS Safety Report 8852931 (Version 1)
Quarter: 2012Q4

REPORT INFORMATION
  Report Type: 
  Country: FR (occurrence: FR)
  Receive Date: 20121022
  Receipt Date: 20121022
  Transmission Date: 20130627
  Serious: Yes (Other)
  Sender: FDA-Public Use
  Company Number: FR-BAXTER-2012BAX020778

PATIENT
  Age: 57 Year
  Sex: Male

DRUGS (11)
  1. ENDOXAN 2000 MG, LYOPHILISAT POUR SOLUTION INJECTABLE [Suspect]
     Indication: LYMPHOMA
     Route: 065
  2. CHLORAMBUCIL [Suspect]
     Indication: LYMPHOMA
     Route: 065
  3. FLUDARABINE [Suspect]
     Indication: LYMPHOMA
     Route: 065
  4. ADRIAMYCIN [Suspect]
     Indication: LYMPHOMA
     Route: 065
  5. VINCRISTINE [Suspect]
     Indication: LYMPHOMA
     Route: 065
  6. PREDNISONE [Suspect]
     Indication: LYMPHOMA
     Route: 065
  7. ALEMTUZUMAB [Suspect]
     Indication: LYMPHOMA
     Route: 065
  8. RITUXIMAB [Suspect]
     Indication: LYMPHOMA
     Route: 065
  9. DEXAMETHASONE [Suspect]
     Indication: LYMPHOMA
     Route: 065
  10. CYTARABINE [Suspect]
     Indication: LYMPHOMA
     Dosage: HIGH DOSE
     Route: 065
  11. CYCLOSPORINE [Suspect]
     Indication: LYMPHOMA
     Route: 065

REACTIONS (1)
  - Hodgkin^s disease [Recovered/Resolved]
